FAERS Safety Report 13726211 (Version 18)
Quarter: 2018Q3

REPORT INFORMATION
  Report Type: Spontaneous
  Country: FR (occurrence: FR)
  Receive Date: 20170706
  Receipt Date: 20180925
  Transmission Date: 20181010
  Serious: Yes (Other)
  Sender: FDA-Public Use
  Company Number: FR-PFIZER INC-2017286952

PATIENT
  Age: 79 Year
  Sex: Female
  Weight: 57 kg

DRUGS (32)
  1. POLARAMINE [Suspect]
     Active Substance: DEXCHLORPHENIRAMINE MALEATE
     Indication: PROPHYLAXIS OF NAUSEA AND VOMITING
     Dosage: 8 MG, SINGLE
     Route: 042
     Dates: start: 20161215, end: 20161215
  2. METFORMINE [Concomitant]
     Active Substance: METFORMIN HYDROCHLORIDE
     Dosage: 1000 MG, 2X/DAY
     Route: 048
  3. PRAVASTATIN SODIUM. [Concomitant]
     Active Substance: PRAVASTATIN SODIUM
     Dosage: 20 MG, ONCE DAILY
     Route: 048
  4. GLICLAZIDE [Concomitant]
     Active Substance: GLICLAZIDE
     Dosage: 60 MG, ONCE DAILY
     Route: 048
  5. GLICLAZIDE [Concomitant]
     Active Substance: GLICLAZIDE
     Dosage: 500 MG, 2X/DAY
     Route: 048
  6. VINCRISTINE HOSPIRA [Suspect]
     Active Substance: VINCRISTINE
     Dosage: 2 MG, SINGLE
     Route: 042
     Dates: start: 20161215, end: 20161215
  7. MABTHERA [Suspect]
     Active Substance: RITUXIMAB
     Indication: MANTLE CELL LYMPHOMA STAGE IV
     Dosage: 600 MG, SINGLE (ONE IN ONE CYCLE)
     Route: 041
     Dates: start: 20161215, end: 20161215
  8. ONDANSETRON ACCORD [Suspect]
     Active Substance: ONDANSETRON
     Indication: PROPHYLAXIS OF NAUSEA AND VOMITING
     Dosage: 8 MG, CYCLIC (ONE IN ONE CYCLE)
     Route: 040
     Dates: start: 20161215, end: 20161215
  9. POLARAMINE [Suspect]
     Active Substance: DEXCHLORPHENIRAMINE MALEATE
     Indication: ALLERGY PROPHYLAXIS
     Dosage: 10 MG, CYCLIC
     Route: 040
     Dates: start: 20161215, end: 20161215
  10. POLARAMINE [Suspect]
     Active Substance: DEXCHLORPHENIRAMINE MALEATE
     Indication: MANTLE CELL LYMPHOMA STAGE IV
     Dosage: 1200 MG, SINGLE, INJECTION
     Route: 042
     Dates: start: 20161215, end: 20161215
  11. MESNA EG [Suspect]
     Active Substance: MESNA
     Indication: DRUG TOXICITY PROPHYLAXIS
     Dosage: 1200 MG, CYCLIC
     Route: 040
     Dates: start: 20161215, end: 20161215
  12. HYDROCHLOROTHIAZIDE. [Concomitant]
     Active Substance: HYDROCHLOROTHIAZIDE
     Dosage: 12.5 MG, 1X/DAY
     Route: 048
  13. VINCRISTINE HOSPIRA [Suspect]
     Active Substance: VINCRISTINE
     Dosage: 8 MG, SINGLE
     Route: 042
     Dates: start: 20161215, end: 20161215
  14. DIAMICRON [Concomitant]
     Active Substance: GLICLAZIDE
     Dosage: 60 MG, ONCE DAILY
     Route: 048
  15. METFORMINE [Concomitant]
     Active Substance: METFORMIN HYDROCHLORIDE
     Dosage: 500 MG, TWICE DAILY (MORNING AND NOON)
     Route: 048
  16. METFORMINE [Concomitant]
     Active Substance: METFORMIN HYDROCHLORIDE
     Dosage: 500 MG, 1X/DAY
     Route: 048
  17. KARDEGIC [Concomitant]
     Active Substance: ASPIRIN DL-LYSINE
     Dosage: 160 MG, ONCE DAILY
     Route: 048
  18. VINCRISTINE HOSPIRA [Suspect]
     Active Substance: VINCRISTINE
     Dosage: 1200 MG, SINGLE
     Route: 042
     Dates: start: 20161215, end: 20161215
  19. COTAREG [Concomitant]
     Active Substance: HYDROCHLOROTHIAZIDE\VALSARTAN
     Dosage: 1 DF, ONCE DAILY
     Route: 048
  20. BACTRIM [Concomitant]
     Active Substance: SULFAMETHOXAZOLE\TRIMETHOPRIM
     Dosage: 1 DF, THREE TIMES WEEKLY
     Route: 048
     Dates: start: 20161215
  21. VALACICLOVIR [Concomitant]
     Active Substance: VALACYCLOVIR HYDROCHLORIDE
     Dosage: 500 MG, ONCE DAILY
     Route: 048
     Dates: start: 20161215
  22. GLICLAZIDE [Concomitant]
     Active Substance: GLICLAZIDE
     Dosage: 12 MG, ONCE DAILY
     Route: 048
  23. VALSARTAN. [Concomitant]
     Active Substance: VALSARTAN
     Dosage: 160 MG, ONCE DAILY
     Route: 048
  24. VINCRISTINE HOSPIRA [Suspect]
     Active Substance: VINCRISTINE
     Indication: MANTLE CELL LYMPHOMA STAGE IV
     Dosage: 2 MG, CYCLIC
     Route: 042
     Dates: start: 20161215, end: 20161215
  25. DOXORUBICIN TEVA [Suspect]
     Active Substance: DOXORUBICIN
     Indication: MANTLE CELL LYMPHOMA STAGE IV
     Dosage: 84 MG, CYCLIC
     Route: 041
     Dates: start: 20161215, end: 20161215
  26. ENDOXAN [Suspect]
     Active Substance: CYCLOPHOSPHAMIDE
     Indication: MANTLE CELL LYMPHOMA STAGE IV
     Dosage: 1260 MG, CYCLIC
     Route: 041
     Dates: start: 20161215, end: 20161215
  27. POLARAMINE [Suspect]
     Active Substance: DEXCHLORPHENIRAMINE MALEATE
     Indication: DRUG TOXICITY PROPHYLAXIS
     Dosage: 2 MG, SINGLE
     Route: 042
     Dates: start: 20161215, end: 20161215
  28. ZELITREX [Concomitant]
     Active Substance: VALACYCLOVIR HYDROCHLORIDE
     Dosage: 500 MG, ONCE DAILY
     Route: 048
     Dates: start: 20161215
  29. SPECIAFOLDINE [Concomitant]
     Active Substance: FOLIC ACID
     Dosage: 10 MG, ONCE DAILY
     Route: 048
     Dates: start: 20161215
  30. GLICLAZIDE [Concomitant]
     Active Substance: GLICLAZIDE
     Dosage: 20 MG, ONCE DAILY
     Route: 048
  31. GLICLAZIDE [Concomitant]
     Active Substance: GLICLAZIDE
     Dosage: 500 MG, ONCE DAILY
     Route: 048
     Dates: start: 20161215, end: 20161215
  32. GLICLAZIDE [Concomitant]
     Active Substance: GLICLAZIDE
     Dosage: 160 MG, ONCE DAILY
     Route: 048

REACTIONS (1)
  - Polyarthritis [Recovered/Resolved]

NARRATIVE: CASE EVENT DATE: 201612
